FAERS Safety Report 8569762-6 (Version None)
Quarter: 2012Q3

REPORT INFORMATION
  Report Type: 
  Country: None (occurrence: None)
  Receive Date: 20120803
  Receipt Date: 20120523
  Transmission Date: 20120928
  Serious: No
  Sender: FDA-Public Use
  Company Number: US-ABBOTT-12P-163-0938439-00

PATIENT
  Sex: Male
  Weight: 76.726 kg

DRUGS (7)
  1. NEXIUM [Concomitant]
     Indication: PRODUCT USED FOR UNKNOWN INDICATION
  2. NIASPAN [Suspect]
     Indication: BLOOD CHOLESTEROL
     Dates: start: 20120522
  3. LOVAZA [Concomitant]
     Indication: PRODUCT USED FOR UNKNOWN INDICATION
  4. METOPROLOL TARTRATE [Concomitant]
     Indication: PRODUCT USED FOR UNKNOWN INDICATION
  5. ASPIRIN [Concomitant]
     Indication: PRODUCT USED FOR UNKNOWN INDICATION
  6. CRESTOR [Concomitant]
     Indication: BLOOD CHOLESTEROL
  7. PAXIL [Concomitant]
     Indication: ANXIETY

REACTIONS (4)
  - INSOMNIA [None]
  - HEADACHE [None]
  - FLUSHING [None]
  - PRURITUS [None]
